FAERS Safety Report 9801749 (Version 1)
Quarter: 2014Q1

REPORT INFORMATION
  Report Type: Spontaneous
  Country: US (occurrence: US)
  Receive Date: 20140107
  Receipt Date: 20140107
  Transmission Date: 20141002
  Serious: Yes (Hospitalization)
  Sender: FDA-Public Use
  Company Number: US-GLAXOSMITHKLINE-A1032681A

PATIENT
  Age: 69 Year
  Sex: Male

DRUGS (1)
  1. AVANDIA [Suspect]
     Indication: DIABETES MELLITUS
     Dosage: 4MG PER DAY
     Route: 048
     Dates: start: 20040331, end: 20080528

REACTIONS (8)
  - Cardiac failure congestive [Not Recovered/Not Resolved]
  - Myocardial ischaemia [Unknown]
  - Coronary artery disease [Unknown]
  - Angina pectoris [Unknown]
  - Renal disorder [Unknown]
  - Vein disorder [Unknown]
  - Ill-defined disorder [Unknown]
  - Dyspnoea [Unknown]
